FAERS Safety Report 23676891 (Version 4)
Quarter: 2024Q3

REPORT INFORMATION
  Report Type: Spontaneous
  Country: US (occurrence: US)
  Receive Date: 20240327
  Receipt Date: 20240715
  Transmission Date: 20241017
  Serious: Yes (Other)
  Sender: BIOVITRUM
  Company Number: US-BIOVITRUM-2024-US-004699

PATIENT
  Age: 70 Year
  Sex: Female

DRUGS (12)
  1. VONJO [Suspect]
     Active Substance: PACRITINIB
     Indication: Immune thrombocytopenia
     Dosage: 2 CAPSULES TWICE A DAY
     Route: 048
     Dates: start: 20231115, end: 20240523
  2. VONJO [Suspect]
     Active Substance: PACRITINIB
     Indication: Myelofibrosis
     Dosage: 2 CAPSULES TWICE A DAY
     Route: 048
     Dates: start: 20231115, end: 20240523
  3. VONJO [Suspect]
     Active Substance: PACRITINIB
     Dosage: TWICE A DAY
     Route: 048
     Dates: start: 20231115, end: 20240523
  4. AMBLEN [Concomitant]
     Indication: Product used for unknown indication
  5. CYCLOBENZAPRINE [Concomitant]
     Active Substance: CYCLOBENZAPRINE
     Indication: Product used for unknown indication
  6. FIBER (PSYLLIUM HUSK) [Concomitant]
     Active Substance: PSYLLIUM HUSK
     Indication: Product used for unknown indication
  7. MIDODRINE [Concomitant]
     Active Substance: MIDODRINE
     Indication: Product used for unknown indication
  8. NIACINAMIDE [Concomitant]
     Active Substance: NIACINAMIDE
     Indication: Product used for unknown indication
  9. PLAQUENIL [Concomitant]
     Active Substance: HYDROXYCHLOROQUINE SULFATE
     Indication: Product used for unknown indication
  10. TYLENOL [Concomitant]
     Active Substance: ACETAMINOPHEN
     Indication: Product used for unknown indication
  11. VITAMIN D3 [Concomitant]
     Active Substance: CHOLECALCIFEROL
     Indication: Product used for unknown indication
  12. PROMETHAZINE [Concomitant]
     Active Substance: PROMETHAZINE HYDROCHLORIDE
     Indication: Product used for unknown indication

REACTIONS (4)
  - Diarrhoea [Not Recovered/Not Resolved]
  - White blood cell count decreased [Unknown]
  - Platelet count decreased [Unknown]
  - Drug ineffective [Unknown]
